FAERS Safety Report 6355227-9 (Version None)
Quarter: 2009Q3

REPORT INFORMATION
  Report Type: 
  Country: None (occurrence: None)
  Receive Date: 20090914
  Receipt Date: 20090902
  Transmission Date: 20100115
  Serious: Yes (Death, Hospitalization, Other)
  Sender: FDA-Public Use
  Company Number: US-CELGENEUS-163-20785-09080532

PATIENT
  Sex: Male

DRUGS (2)
  1. THALOMID [Suspect]
     Indication: MULTIPLE MYELOMA
     Route: 048
     Dates: start: 20080101, end: 20090701
  2. THALOMID [Suspect]
     Dosage: 100-400 MG
     Route: 048
     Dates: start: 20030101, end: 20060401

REACTIONS (4)
  - DRUG TOXICITY [None]
  - GALLBLADDER DISORDER [None]
  - LUNG DISORDER [None]
  - PNEUMONIA [None]
